FAERS Safety Report 6290243-7 (Version None)
Quarter: 2009Q3

REPORT INFORMATION
  Report Type: 
  Country: None (occurrence: None)
  Receive Date: 20090730
  Receipt Date: 20090122
  Transmission Date: 20100115
  Serious: No
  Sender: FDA-Public Use
  Company Number: US-BRISTOL-MYERS SQUIBB COMPANY-14483754

PATIENT
  Sex: Female

DRUGS (6)
  1. COUMADIN [Suspect]
  2. TOPROL-XL [Concomitant]
  3. DIGOXIN [Concomitant]
  4. NITROGLYCERIN [Concomitant]
  5. LORAZEPAM [Concomitant]
  6. DIOVAN [Concomitant]

REACTIONS (1)
  - INTERNATIONAL NORMALISED RATIO FLUCTUATION [None]
